FAERS Safety Report 8367604-5 (Version None)
Quarter: 2012Q2

REPORT INFORMATION
  Report Type: 
  Country: None (occurrence: None)
  Receive Date: 20120517
  Receipt Date: 20120515
  Transmission Date: 20120825
  Serious: Yes (Death, Other)
  Sender: FDA-Public Use
  Company Number: DE-ABBOTT-12P-062-0935437-00

PATIENT
  Sex: Female

DRUGS (10)
  1. SASP [Concomitant]
     Indication: PRODUCT USED FOR UNKNOWN INDICATION
     Dates: start: 20080201, end: 20080201
  2. INFLIXIMAB [Concomitant]
     Indication: PRODUCT USED FOR UNKNOWN INDICATION
     Dates: start: 20011101, end: 20020101
  3. ANA [Concomitant]
     Indication: PRODUCT USED FOR UNKNOWN INDICATION
     Dates: start: 20020501, end: 20030301
  4. HUMIRA [Suspect]
     Indication: RHEUMATOID ARTHRITIS
     Dates: start: 20030701, end: 20040801
  5. METHOTREXATE [Concomitant]
     Indication: PRODUCT USED FOR UNKNOWN INDICATION
     Dates: start: 20000801, end: 20031101
  6. HCQ/CQ [Concomitant]
     Indication: PRODUCT USED FOR UNKNOWN INDICATION
     Dates: start: 20080201, end: 20080201
  7. RITUXIMAB [Concomitant]
     Indication: PRODUCT USED FOR UNKNOWN INDICATION
     Dates: start: 20081126
  8. ENBREL [Concomitant]
     Indication: PRODUCT USED FOR UNKNOWN INDICATION
     Dates: start: 20040801, end: 20060901
  9. METHOTREXATE [Concomitant]
     Dates: start: 20040201, end: 20060901
  10. METHOTREXATE [Concomitant]
     Dates: start: 20070601

REACTIONS (4)
  - VAGINAL CANCER [None]
  - PULMONARY OEDEMA [None]
  - METASTASES TO LUNG [None]
  - BREAST CANCER [None]
